FAERS Safety Report 17999768 (Version 25)
Quarter: 2024Q3

REPORT INFORMATION
  Report Type: Report from Study
  Country: US (occurrence: US)
  Receive Date: 20200709
  Receipt Date: 20240925
  Transmission Date: 20241017
  Serious: Yes (Hospitalization, Other)
  Sender: GLAXOSMITHKLINE
  Company Number: US-GLAXOSMITHKLINE-US2020AMR124042

PATIENT

DRUGS (20)
  1. NIRAPARIB [Suspect]
     Active Substance: NIRAPARIB
     Indication: Malignant peritoneal neoplasm
     Dosage: UNK
     Dates: start: 20181205
  2. NIRAPARIB [Suspect]
     Active Substance: NIRAPARIB
     Indication: Ovarian cancer
     Dosage: 300 MG, QD
     Dates: start: 20190623
  3. NIRAPARIB [Suspect]
     Active Substance: NIRAPARIB
     Dosage: 200 MG, QD
     Dates: start: 201909
  4. NIRAPARIB [Suspect]
     Active Substance: NIRAPARIB
     Dosage: 200 MG, QD
     Dates: start: 20200630
  5. NIRAPARIB [Suspect]
     Active Substance: NIRAPARIB
     Dosage: 200 MG, QD
  6. NIRAPARIB [Suspect]
     Active Substance: NIRAPARIB
     Dosage: 200 MG, QD
  7. NIRAPARIB [Suspect]
     Active Substance: NIRAPARIB
     Dosage: 200 MG, QD
  8. NIRAPARIB [Suspect]
     Active Substance: NIRAPARIB
     Dosage: 200 MG, QD
  9. NIRAPARIB [Suspect]
     Active Substance: NIRAPARIB
     Dosage: 200 MG, QD
  10. NIRAPARIB [Suspect]
     Active Substance: NIRAPARIB
     Dosage: 200 MG, QD
     Dates: end: 20220215
  11. NIRAPARIB [Suspect]
     Active Substance: NIRAPARIB
     Dosage: 200 MG, QD (ONCE A DAY BEDTIME)
     Dates: start: 20220913, end: 20230302
  12. NIRAPARIB [Suspect]
     Active Substance: NIRAPARIB
     Dosage: 200 MG, QD (ONCE A DAY BEDTIME)
     Dates: start: 20230309
  13. NIRAPARIB [Suspect]
     Active Substance: NIRAPARIB
     Dosage: 200 MG, QD
  14. NIRAPARIB [Suspect]
     Active Substance: NIRAPARIB
     Indication: Malignant peritoneal neoplasm
     Dosage: 1 DF, QD, IN THE MORNING
     Route: 048
  15. PROMETHAZINE [Concomitant]
     Active Substance: PROMETHAZINE HYDROCHLORIDE
     Indication: Product used for unknown indication
     Dosage: UNK
  16. AMLODIPINE [Concomitant]
     Active Substance: AMLODIPINE BESYLATE
     Indication: Product used for unknown indication
     Dosage: UNK
  17. HYDROCODONE [Concomitant]
     Active Substance: HYDROCODONE
     Indication: Product used for unknown indication
     Dosage: UNK
  18. FLEXERIL [Concomitant]
     Active Substance: CYCLOBENZAPRINE HYDROCHLORIDE
     Indication: Product used for unknown indication
     Dosage: UNK
  19. IBUPROFEN [Concomitant]
     Active Substance: IBUPROFEN
     Indication: Product used for unknown indication
     Dosage: UNK
  20. GABAPENTIN [Concomitant]
     Active Substance: GABAPENTIN
     Indication: Product used for unknown indication
     Dosage: UNK

REACTIONS (28)
  - Hernia [Recovered/Resolved]
  - Colectomy [Recovering/Resolving]
  - Mass excision [Recovering/Resolving]
  - Recurrent cancer [Unknown]
  - Abdominal pain upper [Unknown]
  - Fatigue [Recovered/Resolved]
  - Arthralgia [Unknown]
  - Joint swelling [Not Recovered/Not Resolved]
  - Blood pressure increased [Recovered/Resolved]
  - Headache [Not Recovered/Not Resolved]
  - Decreased appetite [Unknown]
  - Constipation [Unknown]
  - Blood pressure abnormal [Recovered/Resolved]
  - Heart rate increased [Recovered/Resolved]
  - Dyspnoea [Recovered/Resolved]
  - Gastrooesophageal reflux disease [Unknown]
  - Adverse drug reaction [Unknown]
  - Dry mouth [Recovering/Resolving]
  - Heart rate abnormal [Recovered/Resolved]
  - Pain [Unknown]
  - Hypertension [Recovered/Resolved]
  - Carbohydrate antigen 125 increased [Not Recovered/Not Resolved]
  - Gallbladder polyp [Unknown]
  - White blood cell count decreased [Recovering/Resolving]
  - Platelet count decreased [Recovered/Resolved]
  - Haematocrit decreased [Not Recovered/Not Resolved]
  - Loss of personal independence in daily activities [Not Recovered/Not Resolved]
  - Sinus congestion [Not Recovered/Not Resolved]
